FAERS Safety Report 21897235 (Version 2)
Quarter: 2023Q1

REPORT INFORMATION
  Report Type: Report from Study
  Country: PE (occurrence: PE)
  Receive Date: 20230123
  Receipt Date: 20230128
  Transmission Date: 20230418
  Serious: Yes (Other)
  Sender: FDA-Public Use
  Company Number: PE-002147023-NVSC2023PE013848

PATIENT
  Sex: Male

DRUGS (2)
  1. COSENTYX [Suspect]
     Active Substance: SECUKINUMAB
     Indication: Psoriatic arthropathy
     Dosage: 300 MG, QW,  WEEKLY TREATMENT FOR 5 WEEKS (IMPREGNATION)
     Route: 058
     Dates: start: 202211
  2. COSENTYX [Suspect]
     Active Substance: SECUKINUMAB
     Dosage: UNK
     Route: 065
     Dates: start: 20230121

REACTIONS (5)
  - Diabetes mellitus [Unknown]
  - Pain [Unknown]
  - Gait disturbance [Unknown]
  - Anxiety [Unknown]
  - Product availability issue [Unknown]
